FAERS Safety Report 18767810 (Version 1)
Quarter: 2021Q1

REPORT INFORMATION
  Report Type: Spontaneous
  Country: US (occurrence: US)
  Receive Date: 20210121
  Receipt Date: 20210121
  Transmission Date: 20210419
  Serious: Yes (Hospitalization)
  Sender: FDA-Public Use
  Company Number: US-EMD SERONO-234990J09USA

PATIENT
  Age: 39 Year
  Sex: Female
  Weight: 56 kg

DRUGS (4)
  1. REBIF [Suspect]
     Active Substance: INTERFERON BETA-1A
     Indication: MULTIPLE SCLEROSIS
     Route: 058
     Dates: start: 20091001, end: 20100101
  2. IBUPROFEN. [Suspect]
     Active Substance: IBUPROFEN
     Indication: PRODUCT USED FOR UNKNOWN INDICATION
     Dates: start: 20091001, end: 20091227
  3. FLEXERIL [Concomitant]
     Active Substance: CYCLOBENZAPRINE HYDROCHLORIDE
     Indication: PRODUCT USED FOR UNKNOWN INDICATION
  4. KLONOPIN [Concomitant]
     Active Substance: CLONAZEPAM
     Indication: PRODUCT USED FOR UNKNOWN INDICATION

REACTIONS (10)
  - Injection site erythema [Unknown]
  - Influenza like illness [Unknown]
  - Menorrhagia [Unknown]
  - Tubulointerstitial nephritis [Recovered/Resolved]
  - Glomerulonephropathy [Recovered/Resolved]
  - Haematocrit decreased [Unknown]
  - Fatigue [Unknown]
  - Pain [Unknown]
  - Renal tubular disorder [Recovered/Resolved]
  - Anaemia [Unknown]

NARRATIVE: CASE EVENT DATE: 200912
